FAERS Safety Report 5732532-8 (Version None)
Quarter: 2008Q2

REPORT INFORMATION
  Report Type: 
  Country: None (occurrence: None)
  Receive Date: 20080506
  Receipt Date: 20080430
  Transmission Date: 20081010
  Serious: Yes (Life-Threatening)
  Sender: FDA-Public Use
  Company Number: 2008-175426-NL

PATIENT
  Age: 41 Year
  Sex: Male

DRUGS (10)
  1. MIRTAZAPINE [Suspect]
     Indication: SCHIZOPHRENIA, DISORGANISED TYPE
     Dosage: 30 MG QD
     Route: 048
     Dates: start: 20080225, end: 20080301
  2. CITALOPRAM HYDROBROMIDE [Concomitant]
  3. CLOTIAPINE [Concomitant]
  4. AMISULPRIDE [Suspect]
     Indication: SCHIZOPHRENIA, DISORGANISED TYPE
     Dosage: 100 MG
     Route: 048
     Dates: start: 20080221, end: 20080301
  5. LEVOMEPROMAZINE MALEATE [Suspect]
     Indication: SCHIZOPHRENIA, DISORGANISED TYPE
     Dosage: 25 MG BID
     Route: 048
     Dates: start: 20080225, end: 20080301
  6. CLOZAPINE [Suspect]
     Indication: SCHIZOPHRENIA, DISORGANISED TYPE
     Dosage: 250 MG/50 MG/250 MG /200 MG/400 MG
     Route: 048
     Dates: start: 20010115, end: 20080301
  7. CLOZAPINE [Suspect]
     Indication: SCHIZOPHRENIA, DISORGANISED TYPE
     Dosage: 250 MG/50 MG/250 MG /200 MG/400 MG
     Route: 048
     Dates: start: 20080301, end: 20080310
  8. CLOZAPINE [Suspect]
     Indication: SCHIZOPHRENIA, DISORGANISED TYPE
     Dosage: 250 MG/50 MG/250 MG /200 MG/400 MG
     Route: 048
     Dates: end: 20080320
  9. CLOZAPINE [Suspect]
     Indication: SCHIZOPHRENIA, DISORGANISED TYPE
     Dosage: 250 MG/50 MG/250 MG /200 MG/400 MG
     Route: 048
     Dates: end: 20080323
  10. CLOZAPINE [Suspect]
     Indication: SCHIZOPHRENIA, DISORGANISED TYPE
     Dosage: 250 MG/50 MG/250 MG /200 MG/400 MG
     Route: 048
     Dates: end: 20080405

REACTIONS (3)
  - DRUG INTERACTION [None]
  - HAEMODYNAMIC INSTABILITY [None]
  - NEUROLEPTIC MALIGNANT SYNDROME [None]
